FAERS Safety Report 11216786 (Version 3)
Quarter: 2015Q4

REPORT INFORMATION
  Report Type: Spontaneous
  Country: JP (occurrence: JP)
  Receive Date: 20150624
  Receipt Date: 20151201
  Transmission Date: 20160304
  Serious: Yes (Other)
  Sender: FDA-Public Use
  Company Number: JP-OTSUKA-2015_003981

PATIENT

DRUGS (2)
  1. SAMSCA [Suspect]
     Active Substance: TOLVAPTAN
     Indication: CARDIAC FAILURE
     Dosage: 7.5 MG, QD(IN THE MORNING)
     Route: 048
     Dates: start: 20150617
  2. CETILO [Interacting]
     Active Substance: SENNA LEAF
     Indication: PRODUCT USED FOR UNKNOWN INDICATION
     Dosage: 2 DF, BID
     Route: 048
     Dates: end: 20150619

REACTIONS (3)
  - Drug interaction [Unknown]
  - Drug effect incomplete [Unknown]
  - Anuria [Recovered/Resolved]

NARRATIVE: CASE EVENT DATE: 20150617
